FAERS Safety Report 4893472-X (Version None)
Quarter: 2006Q1

REPORT INFORMATION
  Report Type: 
  Country: None (occurrence: None)
  Receive Date: 20060127
  Receipt Date: 20050413
  Transmission Date: 20060701
  Serious: No
  Sender: FDA-Public Use
  Company Number: US-BRISTOL-MYERS SQUIBB COMPANY-12932380

PATIENT
  Sex: Male

DRUGS (1)
  1. KENALOG [Suspect]
     Indication: NODULE
     Route: 026

REACTIONS (1)
  - LIPOATROPHY [None]
